FAERS Safety Report 10574830 (Version 9)
Quarter: 2015Q3

REPORT INFORMATION
  Report Type: Report from Study
  Country: DE (occurrence: DE)
  Receive Date: 20141110
  Receipt Date: 20150724
  Transmission Date: 20151125
  Serious: Yes (Death, Hospitalization, Other)
  Sender: FDA-Public Use
  Company Number: PHHY2014DE138378

PATIENT
  Age: 56 Year
  Sex: Female

DRUGS (4)
  1. ZYKADIA [Suspect]
     Active Substance: CERITINIB
     Indication: LUNG NEOPLASM MALIGNANT
     Dosage: 750 MG, QD (IN THE MORNING)
     Route: 048
     Dates: start: 20140925, end: 20141029
  2. ZYKADIA [Suspect]
     Active Substance: CERITINIB
     Dosage: 750 MG, QD
     Route: 048
     Dates: start: 20141030
  3. CLINDAMYCIN [Suspect]
     Active Substance: CLINDAMYCIN\CLINDAMYCIN PHOSPHATE
     Indication: RASH GENERALISED
     Dosage: UNK
     Route: 048
  4. CLINDAMYCIN [Suspect]
     Active Substance: CLINDAMYCIN\CLINDAMYCIN PHOSPHATE
     Indication: LYMPHADENITIS
     Dosage: 600 MG, TID
     Route: 048
     Dates: start: 20141011, end: 20141018

REACTIONS (13)
  - Metastases to central nervous system [Not Recovered/Not Resolved]
  - Pruritus [Recovered/Resolved]
  - Papule [Recovered/Resolved]
  - Urticaria [Recovered/Resolved]
  - Death [Fatal]
  - Headache [Recovered/Resolved]
  - Peripheral swelling [Recovered/Resolved]
  - Dermatitis allergic [Recovered/Resolved]
  - Hepatic enzyme increased [Recovered/Resolved]
  - Nausea [Recovered/Resolved]
  - Lymphadenitis [Recovered/Resolved]
  - Swelling [Recovered/Resolved]
  - Rash [Recovered/Resolved]

NARRATIVE: CASE EVENT DATE: 2014
